APPROVED DRUG PRODUCT: FLUCYTOSINE
Active Ingredient: FLUCYTOSINE
Strength: 500MG
Dosage Form/Route: CAPSULE;ORAL
Application: A213665 | Product #002 | TE Code: AB
Applicant: AUROBINDO PHARMA LTD
Approved: May 1, 2020 | RLD: No | RS: No | Type: RX